FAERS Safety Report 8115873-9 (Version None)
Quarter: 2012Q1

REPORT INFORMATION
  Report Type: 
  Country: None (occurrence: None)
  Receive Date: 20120206
  Receipt Date: 20120124
  Transmission Date: 20120608
  Serious: Yes (Other)
  Sender: FDA-Public Use
  Company Number: US-ROCHE-1014628

PATIENT
  Sex: Female
  Weight: 64.922 kg

DRUGS (16)
  1. OMALIZUMAB [Suspect]
     Route: 058
     Dates: start: 20110926
  2. OMALIZUMAB [Suspect]
     Route: 058
     Dates: start: 20111205
  3. PULMICORT-100 [Concomitant]
     Indication: ASTHMA
  4. ACETAMINOPHEN [Concomitant]
     Indication: HEADACHE
  5. ZYRTEC [Concomitant]
     Indication: HYPERSENSITIVITY
  6. METROGEL [Concomitant]
     Indication: ROSACEA
  7. SINGULAIR [Concomitant]
     Indication: ASTHMA
  8. RHINOCORT [Concomitant]
     Indication: HYPERSENSITIVITY
  9. IBUPROFEN [Concomitant]
     Indication: HEADACHE
  10. OMALIZUMAB [Suspect]
     Indication: ASTHMA
     Dosage: TOTAL 63 MONTHS OF THERAPY RECEIVED
     Route: 058
     Dates: start: 20060901
  11. PREVACID [Concomitant]
     Indication: GASTROOESOPHAGEAL REFLUX DISEASE
  12. OMALIZUMAB [Suspect]
     Route: 058
     Dates: start: 20120105
  13. LASTACAFT [Concomitant]
     Indication: ROSACEA
  14. COLACE [Concomitant]
     Indication: CONSTIPATION
  15. XOPENEX [Concomitant]
     Indication: ASTHMA
  16. OMALIZUMAB [Suspect]
     Dosage: LAST DOSE ADMINISTERED ON 26 SEPTEMBER 2011
     Route: 058
     Dates: start: 20110830

REACTIONS (2)
  - ABORTION SPONTANEOUS [None]
  - MATERNAL EXPOSURE DURING PREGNANCY [None]
